FAERS Safety Report 7985576-X (Version None)
Quarter: 2011Q4

REPORT INFORMATION
  Report Type: 
  Country: None (occurrence: None)
  Receive Date: 20111216
  Receipt Date: 20111213
  Transmission Date: 20120403
  Serious: No
  Sender: FDA-Public Use
  Company Number: US-PFIZER INC-2011252565

PATIENT
  Sex: Female
  Weight: 53.1 kg

DRUGS (5)
  1. CALCIUM [Concomitant]
     Dosage: UNK
  2. METOPROLOL [Concomitant]
     Dosage: UNK
  3. VITAMIN TAB [Concomitant]
     Dosage: UNK
  4. LIPITOR [Suspect]
     Indication: BLOOD CHOLESTEROL INCREASED
     Dosage: UNK, 1X/DAY
     Route: 048
     Dates: start: 20030102, end: 20080101
  5. VERAPAMIL [Concomitant]
     Dosage: UNK

REACTIONS (4)
  - INFLUENZA [None]
  - VOMITING [None]
  - MEMORY IMPAIRMENT [None]
  - ABDOMINAL DISCOMFORT [None]
